FAERS Safety Report 5499337-7 (Version None)
Quarter: 2007Q4

REPORT INFORMATION
  Report Type: 
  Country: None (occurrence: None)
  Receive Date: 20071026
  Receipt Date: 20071016
  Transmission Date: 20080405
  Serious: Yes (Hospitalization)
  Sender: FDA-Public Use
  Company Number: JP-ELI_LILLY_AND_COMPANY-JP200710005454

PATIENT
  Age: 71 Year
  Sex: Female

DRUGS (2)
  1. GEMZAR [Suspect]
     Indication: BILE DUCT CANCER
     Dosage: 1000 MG/M2, OTHER
     Route: 042
     Dates: start: 20070301
  2. GEMZAR [Suspect]
     Dosage: 900 MG/M2, OTHER
     Route: 042
     Dates: start: 20070315

REACTIONS (2)
  - ANOREXIA [None]
  - DEHYDRATION [None]
